FAERS Safety Report 8798626 (Version 2)
Quarter: 2012Q4

REPORT INFORMATION
  Report Type: 
  Country: VE (occurrence: VE)
  Receive Date: 20120920
  Receipt Date: 20121003
  Transmission Date: 20130627
  Serious: No
  Sender: FDA-Public Use
  Company Number: VE-PFIZER INC-2012232044

PATIENT
  Age: 74 Year
  Sex: Female

DRUGS (3)
  1. LIPITOR [Suspect]
     Indication: MYOCARDIAL INFARCTION
     Dosage: 40 mg, 1x/day
     Route: 048
     Dates: start: 2006, end: 201206
  2. ADALAT OROS [Concomitant]
     Indication: HYPERTENSION
     Dosage: 30 mg, 1x/day
     Route: 048
     Dates: start: 1996
  3. CORASPIN [Concomitant]
     Indication: CARDIAC DISORDER
     Dosage: 81 mg, 1x/day
     Route: 048
     Dates: start: 2006

REACTIONS (1)
  - Muscle spasms [Recovered/Resolved]
